FAERS Safety Report 9992510 (Version 1)
Quarter: 2014Q1

REPORT INFORMATION
  Report Type: Spontaneous
  Country: DE (occurrence: DE)
  Receive Date: 20140310
  Receipt Date: 20140310
  Transmission Date: 20141002
  Serious: Yes (Other)
  Sender: FDA-Public Use
  Company Number: DE-ABBVIE-14P-062-1208274-00

PATIENT
  Age: 30 Year
  Sex: Female
  Weight: 54 kg

DRUGS (2)
  1. HUMIRA [Suspect]
     Indication: ANKYLOSING SPONDYLITIS
     Route: 058
     Dates: start: 20121001, end: 20121119
  2. BELARA [Suspect]
     Indication: CONTRACEPTION
     Route: 048
     Dates: start: 20121001, end: 20121126

REACTIONS (3)
  - Eclampsia [Unknown]
  - Convulsion [Unknown]
  - Unintended pregnancy [Unknown]
